FAERS Safety Report 13747232 (Version 2)
Quarter: 2017Q3

REPORT INFORMATION
  Report Type: Report from Study
  Country: CO (occurrence: CO)
  Receive Date: 20170712
  Receipt Date: 20170725
  Transmission Date: 20171127
  Serious: Yes (Hospitalization)
  Sender: FDA-Public Use
  Company Number: PHHY2017CO099538

PATIENT
  Sex: Male
  Weight: 78 kg

DRUGS (1)
  1. REVOLADE [Suspect]
     Active Substance: ELTROMBOPAG
     Indication: THROMBOCYTOPENIC PURPURA
     Dosage: 25 MG, BID
     Route: 048
     Dates: start: 20160829

REACTIONS (5)
  - Platelet count decreased [Unknown]
  - Visual impairment [Recovering/Resolving]
  - Gingival bleeding [Unknown]
  - Gait disturbance [Unknown]
  - Epistaxis [Unknown]
